FAERS Safety Report 22106571 (Version 2)
Quarter: 2023Q1

REPORT INFORMATION
  Report Type: Spontaneous
  Country: PL (occurrence: PL)
  Receive Date: 20230317
  Receipt Date: 20230322
  Transmission Date: 20230418
  Serious: Yes (Death, Hospitalization, Other)
  Sender: FDA-Public Use
  Company Number: PL-SA-SAC20230302001555

PATIENT
  Age: 85 Year
  Sex: Male
  Weight: 65 kg

DRUGS (7)
  1. BISACODYL [Suspect]
     Active Substance: BISACODYL
     Indication: Constipation
     Dosage: UNK (1 TABLET OVERNIGHT , 23 JANUARY IN TURN 2 TABLETS OVERNIGHT)
     Route: 065
     Dates: start: 20230122, end: 20230123
  2. DOCETAXEL [Concomitant]
     Active Substance: DOCETAXEL
     Indication: Chemotherapy
     Dosage: UNK (70 % OF RECOMMENDED DOSAGE)
     Route: 042
     Dates: start: 20230120, end: 20230120
  3. DEXAMETHASONE [Concomitant]
     Active Substance: DEXAMETHASONE
     Dosage: UNK
     Route: 048
     Dates: start: 20230120, end: 20230120
  4. DEXAMETHASONE [Concomitant]
     Active Substance: DEXAMETHASONE
     Dosage: 8 MG
     Route: 048
     Dates: start: 20230121, end: 20230121
  5. FILGRASTIM [Concomitant]
     Active Substance: FILGRASTIM
     Dosage: UNK
     Route: 058
     Dates: start: 20230121, end: 20230122
  6. KETOPROFEN [Concomitant]
     Active Substance: KETOPROFEN
     Dosage: 100 MG, Q12H
     Route: 048
     Dates: start: 20230121, end: 20230122
  7. MORPHINE [Concomitant]
     Active Substance: MORPHINE
     Dosage: 20 MG (1/2 TABL EVERY 10 HRS)
     Route: 048
     Dates: start: 20230121, end: 20230122

REACTIONS (7)
  - Azotaemia [Fatal]
  - Acidosis [Fatal]
  - Tachycardia [Fatal]
  - Frequent bowel movements [Not Recovered/Not Resolved]
  - Abdominal pain [Fatal]
  - Diarrhoea [Fatal]
  - Dehydration [Fatal]

NARRATIVE: CASE EVENT DATE: 20230124
